FAERS Safety Report 25036752 (Version 1)
Quarter: 2025Q1

REPORT INFORMATION
  Report Type: Spontaneous
  Country: CL (occurrence: CL)
  Receive Date: 20250304
  Receipt Date: 20250304
  Transmission Date: 20250408
  Serious: Yes (Other)
  Sender: RISING PHARMACEUTICALS
  Company Number: CL-RISINGPHARMA-CL-2025RISLIT00112

PATIENT
  Age: 79 Year
  Sex: Female

DRUGS (1)
  1. MESALAMINE RECTAL [Suspect]
     Active Substance: MESALAMINE
     Indication: Colitis ulcerative
     Route: 065

REACTIONS (5)
  - Drug-induced liver injury [Recovering/Resolving]
  - Disease progression [Recovering/Resolving]
  - Fatigue [Recovering/Resolving]
  - Pyrexia [Recovering/Resolving]
  - Headache [Recovering/Resolving]
